FAERS Safety Report 11322919 (Version 2)
Quarter: 2015Q3

REPORT INFORMATION
  Report Type: Spontaneous
  Country: US (occurrence: US)
  Receive Date: 20150730
  Receipt Date: 20150804
  Transmission Date: 20151125
  Serious: No
  Sender: FDA-Public Use
  Company Number: US-BIOGENIDEC-2015BI106330

PATIENT
  Sex: Female

DRUGS (2)
  1. AMPYRA [Concomitant]
     Active Substance: DALFAMPRIDINE
  2. TECFIDERA [Suspect]
     Active Substance: DIMETHYL FUMARATE
     Indication: MULTIPLE SCLEROSIS
     Route: 048
     Dates: start: 20130708

REACTIONS (10)
  - Increased tendency to bruise [Unknown]
  - Hypoaesthesia [Unknown]
  - Rash [Unknown]
  - Vision blurred [Unknown]
  - Fatigue [Unknown]
  - Drug dose omission [Recovered/Resolved]
  - Musculoskeletal disorder [Unknown]
  - Oropharyngeal pain [Unknown]
  - Balance disorder [Unknown]
  - Skin tightness [Unknown]
